FAERS Safety Report 18436702 (Version 1)
Quarter: 2020Q4

REPORT INFORMATION
  Report Type: Spontaneous
  Country: US (occurrence: US)
  Receive Date: 20201028
  Receipt Date: 20201028
  Transmission Date: 20210114
  Serious: No
  Sender: FDA-Public Use
  Company Number: US-BAYER-2020-225723

PATIENT
  Age: 63 Year
  Sex: Female

DRUGS (3)
  1. ELIQUIS [Suspect]
     Active Substance: APIXABAN
  2. ROXANOL [Concomitant]
     Active Substance: MORPHINE SULFATE
  3. ADEMPAS [Suspect]
     Active Substance: RIOCIGUAT
     Indication: PULMONARY HYPERTENSION
     Dosage: 1.5 MG, TID
     Route: 048
     Dates: start: 20200903

REACTIONS (5)
  - Abdominal pain upper [None]
  - Sleep apnoea syndrome [None]
  - Nausea [None]
  - Abdominal hernia [None]
  - Cholelithiasis [None]

NARRATIVE: CASE EVENT DATE: 20201018
